FAERS Safety Report 8924420 (Version 1)
Quarter: 2012Q4

REPORT INFORMATION
  Report Type: 
  Country: JP (occurrence: JP)
  Receive Date: 20121126
  Receipt Date: 20121126
  Transmission Date: 20130627
  Serious: Yes (Other)
  Sender: FDA-Public Use
  Company Number: PHHY2012JP103131

PATIENT
  Sex: Male

DRUGS (2)
  1. CICLOSPORIN [Suspect]
     Indication: NEPHROTIC SYNDROME
     Route: 048
  2. STEROIDS NOS [Suspect]
     Indication: NEPHROTIC SYNDROME

REACTIONS (5)
  - Hypovolaemic shock [Recovered/Resolved]
  - Renal impairment [Recovered/Resolved]
  - Weight increased [Recovered/Resolved]
  - Pulmonary oedema [Recovered/Resolved]
  - Oedema [Recovered/Resolved]
